FAERS Safety Report 7808147-4 (Version None)
Quarter: 2011Q4

REPORT INFORMATION
  Report Type: 
  Country: None (occurrence: None)
  Receive Date: 20111011
  Receipt Date: 20110929
  Transmission Date: 20120403
  Serious: Yes (Other)
  Sender: FDA-Public Use
  Company Number: PHHY2011TR86830

PATIENT
  Age: 12 Year
  Sex: Female

DRUGS (11)
  1. VORICONAZOLE [Suspect]
     Route: 042
  2. POTASSIUM [Concomitant]
     Route: 042
  3. CYTARABINE [Suspect]
     Indication: ACUTE LYMPHOCYTIC LEUKAEMIA
     Route: 017
  4. MAGNESIUM [Concomitant]
     Route: 042
  5. ELSPAR [Suspect]
     Indication: ACUTE LYMPHOCYTIC LEUKAEMIA
     Route: 042
  6. PREDNISOLONE [Suspect]
     Indication: ACUTE LYMPHOCYTIC LEUKAEMIA
     Dosage: UNK
     Route: 042
  7. DOXORUBICIN HCL [Suspect]
     Indication: ACUTE LYMPHOCYTIC LEUKAEMIA
     Route: 042
  8. VINCRISTINE [Suspect]
     Indication: ACUTE LYMPHOCYTIC LEUKAEMIA
     Route: 042
  9. IMATINIB MESYLATE [Suspect]
     Indication: ACUTE LYMPHOCYTIC LEUKAEMIA
     Route: 042
  10. CIPROFLOXACIN [Concomitant]
  11. LIDOCAINE [Concomitant]
     Route: 042

REACTIONS (11)
  - PYREXIA [None]
  - COUGH [None]
  - WHITE BLOOD CELL COUNT DECREASED [None]
  - NEUTROPHIL COUNT DECREASED [None]
  - HYPOKALAEMIA [None]
  - HEPATIC LESION [None]
  - BRONCHOPULMONARY ASPERGILLOSIS [None]
  - ELECTROCARDIOGRAM QT PROLONGED [None]
  - CHEST PAIN [None]
  - RESPIRATORY FAILURE [None]
  - HYPOMAGNESAEMIA [None]
